FAERS Safety Report 22263507 (Version 1)
Quarter: 2023Q2

REPORT INFORMATION
  Report Type: Spontaneous
  Country: RU (occurrence: None)
  Receive Date: 20230428
  Receipt Date: 20230428
  Transmission Date: 20230722
  Serious: Yes (Other)
  Sender: FDA-Public Use
  Company Number: RU-ROCHE-3337390

PATIENT
  Age: 70 Year

DRUGS (4)
  1. ATEZOLIZUMAB [Suspect]
     Active Substance: ATEZOLIZUMAB
     Indication: Product used for unknown indication
     Dosage: 6TH CYCLE DATED 06/OCT/2021
     Route: 065
     Dates: start: 20210623
  2. BEVACIZUMAB [Suspect]
     Active Substance: BEVACIZUMAB
     Indication: Product used for unknown indication
     Dosage: 6TH CYCLE DATED 06/OCT/2021
     Route: 065
     Dates: start: 20210623
  3. PACLITAXEL [Suspect]
     Active Substance: PACLITAXEL
     Indication: Product used for unknown indication
     Dosage: 6TH CYCLE DATED 06/OCT/2021
     Route: 065
     Dates: start: 20210623
  4. CARBOPLATIN [Suspect]
     Active Substance: CARBOPLATIN
     Indication: Product used for unknown indication
     Dosage: AUC 6, 6TH CYCLE DATED 06/OCT/2021
     Route: 065
     Dates: start: 20210623

REACTIONS (3)
  - Metastases to lung [Unknown]
  - Disease progression [Unknown]
  - COVID-19 [Unknown]
